FAERS Safety Report 7391541-6 (Version None)
Quarter: 2011Q1

REPORT INFORMATION
  Report Type: 
  Country: None (occurrence: None)
  Receive Date: 20110324
  Receipt Date: 20110317
  Transmission Date: 20110831
  Serious: Yes (Death, Hospitalization, Other)
  Sender: FDA-Public Use
  Company Number: 2011AP000419

PATIENT
  Age: 13 Year
  Sex: Male

DRUGS (1)
  1. DESMOPRESSIN (DESMOPRESSIN) [Suspect]
     Indication: HYPOPITUITARISM

REACTIONS (7)
  - HYPONATRAEMIA [None]
  - HYPOXIC-ISCHAEMIC ENCEPHALOPATHY [None]
  - BRAIN OEDEMA [None]
  - CARDIO-RESPIRATORY ARREST [None]
  - BRAIN HERNIATION [None]
  - METABOLIC ENCEPHALOPATHY [None]
  - OSMOTIC DEMYELINATION SYNDROME [None]
